FAERS Safety Report 7091038-7 (Version None)
Quarter: 2010Q4

REPORT INFORMATION
  Report Type: 
  Country: None (occurrence: None)
  Receive Date: 20101109
  Receipt Date: 20101101
  Transmission Date: 20110411
  Serious: Yes (Other)
  Sender: FDA-Public Use
  Company Number: US-SANOFI-AVENTIS-2010SA067143

PATIENT
  Age: 62 Year
  Sex: Male
  Weight: 118 kg

DRUGS (20)
  1. MULTAQ [Suspect]
     Indication: ATRIAL FIBRILLATION
     Route: 048
     Dates: start: 20101001, end: 20101001
  2. WARFARIN [Concomitant]
  3. COREG [Concomitant]
  4. OXYCODONE HCL [Concomitant]
  5. REGLAN /YUG/ [Concomitant]
  6. GLYBURIDE [Concomitant]
  7. GABAPENTIN [Concomitant]
  8. SPIRIVA [Concomitant]
  9. SIMVASTATIN [Concomitant]
  10. ASPIRIN [Concomitant]
  11. STARLIX [Concomitant]
  12. CYMBALTA [Concomitant]
  13. MAGNESIUM [Concomitant]
  14. LASIX [Concomitant]
     Route: 048
  15. METFORMIN [Concomitant]
  16. ADVAIR DISKUS 100/50 [Concomitant]
  17. ALBUTEROL [Concomitant]
  18. LIPITOR [Concomitant]
  19. LISINOPRIL [Concomitant]
  20. INSULIN [Concomitant]

REACTIONS (5)
  - ABDOMINAL PAIN [None]
  - ASTHENIA [None]
  - DIARRHOEA [None]
  - PANCREATITIS [None]
  - WEIGHT DECREASED [None]
